FAERS Safety Report 5993369-8 (Version None)
Quarter: 2008Q4

REPORT INFORMATION
  Report Type: 
  Country: None (occurrence: None)
  Receive Date: 20081212
  Receipt Date: 20081209
  Transmission Date: 20090506
  Serious: Yes (Life-Threatening, Hospitalization)
  Sender: FDA-Public Use
  Company Number: JP-AVENTIS-200813505JP

PATIENT
  Age: 76 Year
  Sex: Male
  Weight: 59 kg

DRUGS (8)
  1. LASIX [Suspect]
     Route: 048
     Dates: start: 20080923, end: 20080929
  2. NU-LOTAN [Suspect]
     Indication: HYPERTENSION
     Route: 048
     Dates: start: 20080918, end: 20080922
  3. NU-LOTAN [Suspect]
     Route: 048
     Dates: start: 20080923, end: 20080926
  4. LIPITOR [Concomitant]
     Dosage: DOSE: 1 TABLET/DAY
     Route: 048
     Dates: start: 20080918, end: 20080926
  5. ZYLORIC [Concomitant]
     Dosage: DOSE: 1 TABLET/DAY
     Route: 048
     Dates: end: 20081005
  6. NORVASC [Concomitant]
     Indication: HYPERTENSION
     Route: 048
     Dates: end: 20081005
  7. KREMEZIN [Concomitant]
     Route: 048
     Dates: start: 20080918, end: 20081002
  8. FLUITRAN [Concomitant]
     Dosage: DOSE: 0.5 TABLET/DAY
     Route: 048
     Dates: end: 20080922

REACTIONS (2)
  - STEVENS-JOHNSON SYNDROME [None]
  - TOXIC SKIN ERUPTION [None]
